FAERS Safety Report 4971413-4 (Version None)
Quarter: 2006Q2

REPORT INFORMATION
  Report Type: 
  Country: None (occurrence: None)
  Receive Date: 20060406
  Receipt Date: 20060320
  Transmission Date: 20061013
  Serious: No
  Sender: FDA-Public Use
  Company Number: BR200603005483

PATIENT
  Age: 56 Year
  Sex: Male
  Weight: 79 kg

DRUGS (3)
  1. CIALIS [Suspect]
     Indication: ERECTILE DYSFUNCTION
     Dosage: 20 MG DAILY 1/D, ORAL
     Route: 048
     Dates: start: 20060319, end: 20060319
  2. ENALAPRIL MALEATE [Concomitant]
  3. ALPRAZOLAM [Concomitant]

REACTIONS (6)
  - ALCOHOL USE [None]
  - DIZZINESS [None]
  - EYE PAIN [None]
  - FATIGUE [None]
  - INADEQUATE DIET [None]
  - VISUAL DISTURBANCE [None]
